FAERS Safety Report 15189416 (Version 1)
Quarter: 2018Q3

REPORT INFORMATION
  Report Type: Spontaneous
  Country: DE (occurrence: DE)
  Receive Date: 20180724
  Receipt Date: 20180724
  Transmission Date: 20181010
  Serious: Yes (Other)
  Sender: FDA-Public Use
  Company Number: DE-AUROBINDO-AUR-APL-2018-037141

PATIENT
  Age: 68 Year
  Sex: Male

DRUGS (3)
  1. PREGABALIN NEURAXPHARM [Suspect]
     Active Substance: PREGABALIN
     Indication: RESTLESS LEGS SYNDROME
     Dosage: 50 MILLIGRAM, TWO TIMES A DAY (IN THE MORNING AND IN THE EVENING (50?25?50/DAY))
     Route: 048
     Dates: start: 201805
  2. PREGABALIN NEURAXPHARM [Suspect]
     Active Substance: PREGABALIN
     Indication: RESTLESS LEGS SYNDROME
     Dosage: 25 MILLIGRAM, DAILY (IN THE MIDDAY (50?25?50/DAY))
     Route: 048
     Dates: start: 201805
  3. PRAMIPEXOLE (PRAMIPEXOLE) [Suspect]
     Active Substance: PRAMIPEXOLE
     Indication: RESTLESS LEGS SYNDROME
     Dosage: 0.18 MILLIGRAM, 3 TIMES A DAY (3 TIMES DAILY (MORNING, MIDDAY AND EVENING))
     Route: 048

REACTIONS (4)
  - Hypotony of eye [Unknown]
  - Off label use [Unknown]
  - Dizziness [Unknown]
  - Restlessness [Unknown]
